FAERS Safety Report 17673586 (Version 1)
Quarter: 2020Q2

REPORT INFORMATION
  Report Type: Spontaneous
  Country: IT (occurrence: IT)
  Receive Date: 20200415
  Receipt Date: 20200415
  Transmission Date: 20200714
  Serious: Yes (Other)
  Sender: FDA-Public Use
  Company Number: IT-SA-2020SA097155

PATIENT
  Age: 49 Year
  Sex: Male

DRUGS (4)
  1. LANTUS [Interacting]
     Active Substance: INSULIN GLARGINE
     Dosage: UNK
     Route: 059
  2. INSULIN LISPRO [Interacting]
     Active Substance: INSULIN LISPRO
     Dosage: UNK
     Route: 059
  3. INSULIN LISPRO [Suspect]
     Active Substance: INSULIN LISPRO
     Indication: TYPE 1 DIABETES MELLITUS
     Dosage: 26 IU, QD
     Route: 059
     Dates: start: 20191130
  4. LANTUS [Interacting]
     Active Substance: INSULIN GLARGINE
     Indication: TYPE 1 DIABETES MELLITUS
     Dosage: 24 IU, QD
     Route: 059
     Dates: start: 20191130

REACTIONS (3)
  - Loss of consciousness [Recovering/Resolving]
  - Hypoglycaemia [Recovering/Resolving]
  - Drug interaction [Unknown]

NARRATIVE: CASE EVENT DATE: 20200309
